FAERS Safety Report 10706348 (Version 2)
Quarter: 2015Q1

REPORT INFORMATION
  Report Type: Spontaneous
  Country: IT (occurrence: IT)
  Receive Date: 20150113
  Receipt Date: 20150113
  Transmission Date: 20150721
  Serious: Yes (Other)
  Sender: FDA-Public Use
  Company Number: IT-AUROBINDO-AUR-APL-2014-09477

PATIENT
  Age: 11 Year
  Sex: Female

DRUGS (2)
  1. AMOXICILLIN. [Suspect]
     Active Substance: AMOXICILLIN
     Indication: OTITIS MEDIA
     Dosage: 2 G, DAILY
     Route: 048
     Dates: start: 20140806, end: 20140816
  2. UNIXIME [Suspect]
     Active Substance: CEFIXIME
     Indication: OTITIS MEDIA
     Dosage: 1 DF, DAILY
     Route: 048
     Dates: start: 20140726, end: 20140730

REACTIONS (2)
  - Otitis media [Recovering/Resolving]
  - Drug ineffective [Recovering/Resolving]

NARRATIVE: CASE EVENT DATE: 20140901
